FAERS Safety Report 8508084-6 (Version None)
Quarter: 2012Q2

REPORT INFORMATION
  Report Type: 
  Country: None (occurrence: None)
  Receive Date: 20120405
  Receipt Date: 20090903
  Transmission Date: 20120825
  Serious: Yes (Hospitalization)
  Sender: FDA-Public Use
  Company Number: PHEH2009US10453

PATIENT
  Age: 75 Year
  Sex: Female
  Weight: 67.1 kg

DRUGS (1)
  1. RECLAST [Suspect]
     Dosage: 5 MG IV X ONCE, INFUSION
     Dates: start: 20090731

REACTIONS (3)
  - PYREXIA [None]
  - BLOOD CREATINE INCREASED [None]
  - MYALGIA [None]
